FAERS Safety Report 10014478 (Version 2)
Quarter: 2014Q1

REPORT INFORMATION
  Report Type: Spontaneous
  Country: US (occurrence: US)
  Receive Date: 20140317
  Receipt Date: 20140317
  Transmission Date: 20141002
  Serious: Yes (Death)
  Sender: FDA-Public Use
  Company Number: US-GE HEALTHCARE MEDICAL DIAGNOSTICS-OSCN-PR-1108S-0172

PATIENT
  Age: 40 Year
  Sex: Female

DRUGS (2)
  1. OMNISCAN [Suspect]
     Indication: SUPERIOR VENA CAVA SYNDROME
     Route: 065
     Dates: start: 20021127, end: 20021127
  2. GADOLINIUM (UNSPECIFIED) [Suspect]
     Indication: MENTAL STATUS CHANGES
     Dates: start: 20061208, end: 20061208

REACTIONS (1)
  - Nephrogenic systemic fibrosis [Fatal]
